FAERS Safety Report 8418951-X (Version None)
Quarter: 2012Q2

REPORT INFORMATION
  Report Type: 
  Country: None (occurrence: None)
  Receive Date: 20120607
  Receipt Date: 20120530
  Transmission Date: 20120825
  Serious: Yes (Other)
  Sender: FDA-Public Use
  Company Number: PHHY2012BR031359

PATIENT
  Sex: Male

DRUGS (3)
  1. BETALOR [Suspect]
     Indication: HYPERTENSION
  2. RASILEZ HCT [Suspect]
     Indication: HYPERTENSION
     Dosage: 1 DF, IN THE MORNING
     Dates: start: 20050101
  3. RASILEZ HCT [Suspect]
     Indication: RENAL DISORDER

REACTIONS (5)
  - METASTASES TO LUNG [None]
  - HEPATIC CANCER METASTATIC [None]
  - WEIGHT INCREASED [None]
  - RENAL CANCER [None]
  - BLOOD PRESSURE INCREASED [None]
